FAERS Safety Report 8791393 (Version 1)
Quarter: 2012Q4

REPORT INFORMATION
  Report Type: Spontaneous
  Country: US (occurrence: None)
  Receive Date: 20120914
  Receipt Date: 20120914
  Transmission Date: 20130627
  Serious: No
  Sender: FDA-Public Use
  Company Number: None

PATIENT
  Age: 74 Year
  Sex: Female
  Weight: 75.75 kg

DRUGS (1)
  1. ATELVIA [Suspect]
     Indication: OSTEOPENIA
     Dosage: 1-35 mg tab weekly
     Dates: start: 20120819

REACTIONS (1)
  - Abdominal pain upper [None]
